FAERS Safety Report 10151227 (Version 1)
Quarter: 2014Q2

REPORT INFORMATION
  Report Type: Spontaneous
  Country: US (occurrence: US)
  Receive Date: 20140502
  Receipt Date: 20140502
  Transmission Date: 20141212
  Serious: No
  Sender: FDA-Public Use
  Company Number: US-ASTRAZENECA-2013SE86727

PATIENT
  Age: 65 Year
  Sex: Female

DRUGS (1)
  1. PRILOSEC OTC [Suspect]
     Indication: NAUSEA
     Dosage: 2 TABLET, CYCLIC 2/D, WILDBERRY FLAVOR
     Route: 048
     Dates: start: 20131116, end: 20131117

REACTIONS (6)
  - Pharyngeal oedema [Recovered/Resolved]
  - Throat irritation [Recovered/Resolved]
  - Condition aggravated [Not Recovered/Not Resolved]
  - Angioedema [Recovered/Resolved]
  - Nausea [Not Recovered/Not Resolved]
  - Inappropriate schedule of drug administration [Recovered/Resolved]
